FAERS Safety Report 23295296 (Version 1)
Quarter: 2023Q4

REPORT INFORMATION
  Report Type: Spontaneous
  Country: US (occurrence: None)
  Receive Date: 20231214
  Receipt Date: 20231214
  Transmission Date: 20240110
  Serious: No
  Sender: FDA-Public Use
  Company Number: 2023A265063

PATIENT

DRUGS (2)
  1. FASLODEX [Suspect]
     Active Substance: FULVESTRANT
     Indication: Breast cancer metastatic
     Route: 048
     Dates: start: 202305
  2. IBRANCE [Suspect]
     Active Substance: PALBOCICLIB
     Indication: Breast cancer metastatic
     Route: 048
     Dates: start: 202302

REACTIONS (6)
  - Fatigue [Not Recovered/Not Resolved]
  - Alopecia [Not Recovered/Not Resolved]
  - Depressed mood [Not Recovered/Not Resolved]
  - Hypersomnia [Not Recovered/Not Resolved]
  - Balance disorder [Unknown]
  - Product dose omission issue [Unknown]
